FAERS Safety Report 7229380-9 (Version None)
Quarter: 2011Q1

REPORT INFORMATION
  Report Type: 
  Country: None (occurrence: None)
  Receive Date: 20110117
  Receipt Date: 20110110
  Transmission Date: 20110831
  Serious: Yes (Other)
  Sender: FDA-Public Use
  Company Number: A0904948A

PATIENT
  Age: 52 Year
  Sex: Female

DRUGS (2)
  1. ADVAIR [Suspect]
     Indication: ASTHMA
     Dosage: 1PUFF TWICE PER DAY
     Route: 055
     Dates: start: 20060101
  2. NO CONCURRENT MEDICATION [Concomitant]

REACTIONS (6)
  - BRONCHITIS [None]
  - GASTRIC DISORDER [None]
  - MIGRAINE WITH AURA [None]
  - VISUAL IMPAIRMENT [None]
  - AURA [None]
  - BLINDNESS [None]
